FAERS Safety Report 14067836 (Version 1)
Quarter: 2017Q4

REPORT INFORMATION
  Report Type: Spontaneous
  Country: US (occurrence: None)
  Receive Date: 20171007
  Receipt Date: 20171007
  Transmission Date: 20180321
  Serious: Yes (Hospitalization)
  Sender: FDA-Public Use
  Company Number: None

PATIENT
  Age: 68 Year
  Sex: Female
  Weight: 67.4 kg

DRUGS (3)
  1. METFORMIN HYDROCHLORIDE. [Suspect]
     Active Substance: METFORMIN HYDROCHLORIDE
     Dates: end: 20170909
  2. TAXOL [Suspect]
     Active Substance: PACLITAXEL
     Dates: end: 20170906
  3. CARBOPLATIN. [Suspect]
     Active Substance: CARBOPLATIN
     Dates: end: 20170906

REACTIONS (5)
  - Syncope [None]
  - Atrial fibrillation [None]
  - Sepsis [None]
  - Dehydration [None]
  - Ventricular extrasystoles [None]

NARRATIVE: CASE EVENT DATE: 20170910
